FAERS Safety Report 7386516-7 (Version None)
Quarter: 2011Q1

REPORT INFORMATION
  Report Type: 
  Country: None (occurrence: None)
  Receive Date: 20110329
  Receipt Date: 20110329
  Transmission Date: 20110831
  Serious: No
  Sender: FDA-Public Use
  Company Number: None

PATIENT
  Age: 28 Year
  Sex: Female

DRUGS (1)
  1. MORPHINE SULFATE 2MG/ML HOSPIRA [Suspect]
     Indication: ANALGESIC THERAPY
     Dosage: 2MG X1 IV
     Route: 042

REACTIONS (2)
  - PRURITUS [None]
  - INFUSION SITE ERYTHEMA [None]
